FAERS Safety Report 21296508 (Version 6)
Quarter: 2024Q1

REPORT INFORMATION
  Report Type: Other
  Country: JP (occurrence: JP)
  Receive Date: 20220906
  Receipt Date: 20240223
  Transmission Date: 20240410
  Serious: Yes (Other)
  Sender: FDA-Public Use
  Company Number: JP-CHUGAI-2022033812

PATIENT
  Age: 59 Year
  Sex: Female

DRUGS (19)
  1. SATRALIZUMAB [Suspect]
     Active Substance: SATRALIZUMAB
     Indication: Neuromyelitis optica spectrum disorder
     Dosage: UNK
     Route: 058
     Dates: start: 20210614, end: 20210714
  2. SATRALIZUMAB [Suspect]
     Active Substance: SATRALIZUMAB
     Route: 058
     Dates: start: 20210911, end: 20220803
  3. SATRALIZUMAB [Suspect]
     Active Substance: SATRALIZUMAB
     Route: 058
     Dates: start: 20220914
  4. SATRALIZUMAB [Suspect]
     Active Substance: SATRALIZUMAB
     Route: 058
     Dates: start: 20220105, end: 20231213
  5. SATRALIZUMAB [Suspect]
     Active Substance: SATRALIZUMAB
     Route: 058
  6. SATRALIZUMAB [Suspect]
     Active Substance: SATRALIZUMAB
     Route: 058
  7. PREDNISOLONE [Concomitant]
     Active Substance: PREDNISOLONE
     Indication: Neuromyelitis optica spectrum disorder
     Dosage: 8 MILLIGRAM
     Route: 065
  8. PREDNISOLONE [Concomitant]
     Active Substance: PREDNISOLONE
     Dates: start: 20210614, end: 20210713
  9. PREDNISOLONE [Concomitant]
     Active Substance: PREDNISOLONE
     Dates: start: 20210714, end: 20210810
  10. PREDNISOLONE [Concomitant]
     Active Substance: PREDNISOLONE
     Dates: start: 20210811, end: 20210907
  11. PREDNISOLONE [Concomitant]
     Active Substance: PREDNISOLONE
     Dates: start: 20210908, end: 20211005
  12. PREDNISOLONE [Concomitant]
     Active Substance: PREDNISOLONE
     Dates: start: 20211006, end: 20211109
  13. PREDNISOLONE [Concomitant]
     Active Substance: PREDNISOLONE
     Dates: start: 20211110, end: 20211207
  14. PREDNISOLONE [Concomitant]
     Active Substance: PREDNISOLONE
     Dates: end: 20211208
  15. AZATHIOPRINE [Concomitant]
     Active Substance: AZATHIOPRINE
     Indication: Neuromyelitis optica spectrum disorder
     Route: 065
  16. PREGABALIN [Concomitant]
     Active Substance: PREGABALIN
     Indication: Pain
     Dosage: 100MG/DAY
     Route: 065
  17. CARBAMAZEPINE [Concomitant]
     Active Substance: CARBAMAZEPINE
     Indication: Pain
     Dosage: 300MG/DAY
     Route: 065
  18. COVID-19 VACCINE MRNA [Concomitant]
     Indication: COVID-19 prophylaxis
     Dosage: UNK
  19. COVID-19 VACCINE MRNA [Concomitant]
     Dosage: UNK

REACTIONS (11)
  - Toxic skin eruption [Recovered/Resolved]
  - Conjunctival hyperaemia [Recovered/Resolved]
  - Oedema [Recovered/Resolved]
  - Fibrin D dimer increased [Recovered/Resolved]
  - Escherichia test positive [Unknown]
  - Enterococcus test positive [Unknown]
  - Gardnerella test positive [Unknown]
  - White blood cell count decreased [Recovering/Resolving]
  - Blood triglycerides increased [Recovering/Resolving]
  - Hepatic function abnormal [Recovering/Resolving]
  - Lymphocyte count decreased [Unknown]

NARRATIVE: CASE EVENT DATE: 20220801
